FAERS Safety Report 16883742 (Version 1)
Quarter: 2019Q4

REPORT INFORMATION
  Report Type: Spontaneous
  Country: US (occurrence: US)
  Receive Date: 20191004
  Receipt Date: 20191004
  Transmission Date: 20200122
  Serious: Yes (Hospitalization, Other)
  Sender: FDA-Public Use
  Company Number: US-DRREDDYS-USA/USA/19/0114812

PATIENT
  Age: 44 Year
  Sex: Male

DRUGS (7)
  1. PREDNISONE. [Suspect]
     Active Substance: PREDNISONE
     Indication: IMMUNOSUPPRESSION
     Route: 065
  2. AZATHIOPRINE. [Suspect]
     Active Substance: AZATHIOPRINE
     Indication: IMMUNOSUPPRESSION
     Route: 065
  3. BASILIXIMAB [Suspect]
     Active Substance: BASILIXIMAB
     Indication: IMMUNOSUPPRESSION
     Route: 042
  4. TACROLIMUS. [Suspect]
     Active Substance: TACROLIMUS
     Indication: IMMUNOSUPPRESSION
     Dosage: PRIOR GRAFT
     Route: 065
  5. PREDNISONE. [Suspect]
     Active Substance: PREDNISONE
     Dosage: SECOND GRAFT
  6. SIROLIMUS. [Suspect]
     Active Substance: SIROLIMUS
     Indication: IMMUNOSUPPRESSION
     Dosage: PRIOR GRAFT
     Route: 065
  7. TACROLIMUS. [Suspect]
     Active Substance: TACROLIMUS
     Dosage: SECOND GRAFT

REACTIONS (11)
  - Cholestasis [Unknown]
  - Large intestine polyp [Unknown]
  - Gastrointestinal bacterial overgrowth [Unknown]
  - Anastomotic leak [Unknown]
  - Fibrosis [Unknown]
  - Steatohepatitis [Unknown]
  - Adenoma benign [Unknown]
  - Abdominal sepsis [Unknown]
  - Functional gastrointestinal disorder [Unknown]
  - Hyperammonaemia [Unknown]
  - Gastric perforation [Unknown]
